FAERS Safety Report 7564884-0 (Version None)
Quarter: 2011Q2

REPORT INFORMATION
  Report Type: 
  Country: None (occurrence: None)
  Receive Date: 20110622
  Receipt Date: 20110126
  Transmission Date: 20111010
  Serious: Yes (Other)
  Sender: FDA-Public Use
  Company Number: US-MYLANLABS-2011S1001979

PATIENT
  Age: 18 Year
  Sex: Female

DRUGS (5)
  1. CLOZAPINE [Suspect]
     Route: 048
     Dates: end: 20110121
  2. KEPPRA [Concomitant]
  3. CLARAVIS [Concomitant]
  4. TOPAMAX [Concomitant]
  5. LAMICTAL [Concomitant]

REACTIONS (1)
  - GRANULOCYTOPENIA [None]
